FAERS Safety Report 8061377-1 (Version None)
Quarter: 2012Q1

REPORT INFORMATION
  Report Type: 
  Country: None (occurrence: None)
  Receive Date: 20120120
  Receipt Date: 20111025
  Transmission Date: 20120608
  Serious: No
  Sender: FDA-Public Use
  Company Number: US-ALLERGAN-0916927US

PATIENT
  Sex: Female

DRUGS (2)
  1. RESTASIS [Suspect]
     Indication: DRY EYE
     Dosage: UNK
     Route: 047
     Dates: start: 20091101
  2. GENTEAL [Concomitant]

REACTIONS (9)
  - EYE PRURITUS [None]
  - LACRIMATION INCREASED [None]
  - EYE DISCHARGE [None]
  - EYE PAIN [None]
  - DRUG INEFFECTIVE [None]
  - PAIN [None]
  - EYE IRRITATION [None]
  - FOREIGN BODY [None]
  - VISION BLURRED [None]
